FAERS Safety Report 20150935 (Version 1)
Quarter: 2021Q4

REPORT INFORMATION
  Report Type: Spontaneous
  Country: US (occurrence: None)
  Receive Date: 20211203
  Receipt Date: 20211203
  Transmission Date: 20220303
  Serious: Yes (Life-Threatening)
  Sender: FDA-Public Use
  Company Number: None

PATIENT
  Sex: Female

DRUGS (9)
  1. VERZENIO [Suspect]
     Active Substance: ABEMACICLIB
     Indication: Soft tissue sarcoma
     Route: 048
     Dates: start: 20211026
  2. BENZONATATE [Concomitant]
     Active Substance: BENZONATATE
  3. ACETAMINOPHEN\HYDROCODONE [Concomitant]
     Active Substance: ACETAMINOPHEN\HYDROCODONE
  4. ACETAMINOPHEN\HYDROCODONE [Concomitant]
     Active Substance: ACETAMINOPHEN\HYDROCODONE
  5. KISQALI [Concomitant]
     Active Substance: RIBOCICLIB
  6. LETROZOLE [Concomitant]
     Active Substance: LETROZOLE
  7. NAPROXEN [Concomitant]
     Active Substance: NAPROXEN
  8. ONDANSETRON [Concomitant]
     Active Substance: ONDANSETRON
  9. PROCHLORPER [Concomitant]

REACTIONS (5)
  - Nausea [None]
  - Vomiting [None]
  - Suicidal ideation [None]
  - Feeling abnormal [None]
  - Agitation [None]
